FAERS Safety Report 16453638 (Version 3)
Quarter: 2019Q3

REPORT INFORMATION
  Report Type: Spontaneous
  Country: PE (occurrence: PE)
  Receive Date: 20190619
  Receipt Date: 20190714
  Transmission Date: 20191004
  Serious: Yes (Death, Hospitalization, Other)
  Sender: FDA-Public Use
  Company Number: PE-B.I. PHARMACEUTICALS,INC./RIDGEFIELD-2019-BI-026632

PATIENT
  Age: 85 Year
  Sex: Male
  Weight: 70 kg

DRUGS (7)
  1. ATORVASTATIN [Concomitant]
     Active Substance: ATORVASTATIN
     Indication: PRODUCT USED FOR UNKNOWN INDICATION
     Route: 048
  2. IRBESARTAN. [Concomitant]
     Active Substance: IRBESARTAN
     Indication: HYPERTENSION
     Route: 048
  3. PRADAXA [Suspect]
     Active Substance: DABIGATRAN ETEXILATE MESYLATE
     Indication: ATRIAL FIBRILLATION
     Route: 048
     Dates: start: 2013, end: 20190605
  4. GABAPENTIN. [Concomitant]
     Active Substance: GABAPENTIN
     Indication: POST HERPETIC NEURALGIA
     Route: 048
  5. BISOPROLOL [Concomitant]
     Active Substance: BISOPROLOL
     Indication: HYPERTENSION
     Route: 048
  6. PROPAFENONE. [Concomitant]
     Active Substance: PROPAFENONE
     Indication: ATRIAL FIBRILLATION
     Route: 048
  7. FUROSEMIDE. [Concomitant]
     Active Substance: FUROSEMIDE
     Indication: HYPERTENSION
     Route: 048

REACTIONS (5)
  - Cerebral haemorrhage [Fatal]
  - Subarachnoid haemorrhage [Fatal]
  - Brain oedema [Fatal]
  - Haemorrhagic stroke [Fatal]
  - Hypertensive crisis [Fatal]

NARRATIVE: CASE EVENT DATE: 20190606
